FAERS Safety Report 9527090 (Version 2)
Quarter: 2013Q3

REPORT INFORMATION
  Report Type: Report from Study
  Country: IT (occurrence: IT)
  Receive Date: 20130916
  Receipt Date: 20130916
  Transmission Date: 20140515
  Serious: Yes (Hospitalization)
  Sender: FDA-Public Use
  Company Number: IT-TEVA-359448USA

PATIENT
  Age: 65 Year
  Sex: Male

DRUGS (8)
  1. CYTARABINE [Suspect]
     Indication: MANTLE CELL LYMPHOMA
     Dosage: 500 MG/M9 (TOTAL DOSE: 1009.3 MG)CYCLICALLY
     Route: 042
     Dates: start: 20120828
  2. CYTARABINE [Suspect]
     Dosage: 500 MG/M9 (TOTAL DOSE: 1009.3 MG)CYCLICALLY
     Route: 042
     Dates: start: 20120831
  3. BENDAMUSTIN [Suspect]
     Indication: MANTLE CELL LYMPHOMA
     Dosage: 70 MG/M9 CYCLIC
     Route: 042
     Dates: start: 20120828
  4. BENDAMUSTIN [Suspect]
     Dosage: 70 MG/M9 CYCLIC
     Route: 042
     Dates: start: 20120831
  5. RITUXIMAB [Suspect]
     Indication: MANTLE CELL LYMPHOMA
     Dosage: 375MG/M9(TOTAL DOSE: 756.9 MG) CYCLICALLY
     Route: 042
     Dates: start: 20120828
  6. RITUXIMAB [Suspect]
     Dosage: 375MG/M9(TOTAL DOSE: 756.9 MG) CYCLICALLY
     Route: 042
     Dates: start: 20120831
  7. ZEFFIX [Concomitant]
     Dates: start: 20120809
  8. LIMPIDEX [Concomitant]
     Dates: start: 20130807

REACTIONS (1)
  - Febrile neutropenia [Recovered/Resolved]
